FAERS Safety Report 9322958 (Version 1)
Quarter: 2013Q2

REPORT INFORMATION
  Report Type: Spontaneous
  Country: FR (occurrence: FR)
  Receive Date: 20130603
  Receipt Date: 20130603
  Transmission Date: 20140414
  Serious: Yes (Life-Threatening)
  Sender: FDA-Public Use
  Company Number: FR-ROCHE-1230637

PATIENT
  Age: 50 Year
  Sex: Female

DRUGS (5)
  1. XELODA [Suspect]
     Indication: BREAST NEOPLASM
     Route: 065
     Dates: end: 201301
  2. XELODA [Suspect]
     Indication: METASTASES TO LUNG
     Route: 065
  3. XELODA [Suspect]
     Indication: METASTASES TO BONE
  4. ZOMETA [Suspect]
     Indication: HYPERCALCAEMIA
     Route: 051
     Dates: start: 20130111
  5. KEPPRA [Concomitant]
     Indication: CONVULSION

REACTIONS (1)
  - Status epilepticus [Recovered/Resolved]
